FAERS Safety Report 10300803 (Version 4)
Quarter: 2015Q4

REPORT INFORMATION
  Report Type: Report from Study
  Country: US (occurrence: US)
  Receive Date: 20140714
  Receipt Date: 20151113
  Transmission Date: 20160304
  Serious: Yes (Death, Life-Threatening, Hospitalization)
  Sender: FDA-Public Use
  Company Number: US-BIOGENIDEC-2014BI062608

PATIENT
  Age: 48 Year
  Sex: Female
  Weight: 70 kg

DRUGS (4)
  1. TOPAMAX [Concomitant]
     Active Substance: TOPIRAMATE
  2. TECFIDERA [Suspect]
     Active Substance: DIMETHYL FUMARATE
     Indication: RELAPSING-REMITTING MULTIPLE SCLEROSIS
     Route: 048
     Dates: start: 20140613, end: 20140622
  3. CHOLECALCIFEROL [Concomitant]
     Active Substance: CHOLECALCIFEROL
  4. TECFIDERA [Suspect]
     Active Substance: DIMETHYL FUMARATE
     Indication: RELAPSING-REMITTING MULTIPLE SCLEROSIS
     Route: 048
     Dates: start: 20140606, end: 20140612

REACTIONS (32)
  - Seizure [Unknown]
  - Hypocalcaemia [Unknown]
  - Thrombocytopenia [Unknown]
  - Mastoiditis [Unknown]
  - Brain oedema [Fatal]
  - Asthenia [Unknown]
  - Aphasia [Unknown]
  - Decreased appetite [Unknown]
  - Vomiting [Unknown]
  - Arrhythmia [Unknown]
  - Brain herniation [Fatal]
  - Flushing [Unknown]
  - Abdominal pain [Unknown]
  - Haemorrhagic transformation stroke [Fatal]
  - Cerebral venous thrombosis [Unknown]
  - Dehydration [Unknown]
  - Diarrhoea [Unknown]
  - Atrial fibrillation [Unknown]
  - Coma [Unknown]
  - Headache [Unknown]
  - Nausea [Unknown]
  - Hypokalaemia [Unknown]
  - Respiratory failure [Unknown]
  - Brain compression [Unknown]
  - Hypoosmolar state [Unknown]
  - Hyponatraemia [Unknown]
  - Lethargy [Unknown]
  - Iron deficiency anaemia [Unknown]
  - Fatigue [Unknown]
  - Intracranial pressure increased [Unknown]
  - Encephalopathy [Unknown]
  - General symptom [Unknown]

NARRATIVE: CASE EVENT DATE: 2014
